FAERS Safety Report 8458775 (Version 5)
Quarter: 2012Q4

REPORT INFORMATION
  Report Type: 
  Country: US (occurrence: US)
  Receive Date: 20120314
  Receipt Date: 20120911
  Transmission Date: 20130627
  Serious: Yes (Hospitalization)
  Sender: FDA-Public Use
  Company Number: US-BAYER-2012-023355

PATIENT
  Age: 22 Year
  Sex: Female
  Weight: 53.52 kg

DRUGS (3)
  1. YAZ [Suspect]
     Dosage: UNK
     Dates: start: 20060101, end: 200812
  2. YASMIN [Suspect]
     Dosage: UNK
     Dates: start: 20061201
  3. PLAN B [Concomitant]

REACTIONS (7)
  - Pulmonary embolism [None]
  - Palpitations [None]
  - Hyperhidrosis [None]
  - Chest discomfort [None]
  - Dyspnoea [None]
  - Dizziness [None]
  - Fear of death [None]
